FAERS Safety Report 5724635-9 (Version None)
Quarter: 2008Q2

REPORT INFORMATION
  Report Type: 
  Country: None (occurrence: None)
  Receive Date: 20080430
  Receipt Date: 20080430
  Transmission Date: 20081010
  Serious: No
  Sender: FDA-Public Use
  Company Number: None

PATIENT
  Age: 37 Year
  Sex: Female
  Weight: 84.5 kg

DRUGS (12)
  1. MEROPENEM [Suspect]
     Indication: FEBRILE NEUTROPENIA
     Dosage: 2 GM IV Q8
     Route: 042
     Dates: start: 20071026, end: 20071029
  2. LEVOTHYROXINE SODIUM [Concomitant]
  3. DULOXETINE [Suspect]
  4. CYANOCOBALAMIN [Suspect]
  5. GUAIFENESIN [Concomitant]
  6. LOTREL [Concomitant]
  7. CARBIDOPA AND LEVODOPA [Concomitant]
  8. MODAFINIL [Suspect]
  9. DIAZEPAM [Concomitant]
  10. MICAFUNGIN [Suspect]
  11. DAPTOMYCIN [Suspect]
  12. WARFARIN SODIUM [Concomitant]

REACTIONS (1)
  - DRUG HYPERSENSITIVITY [None]
